FAERS Safety Report 18750749 (Version 2)
Quarter: 2021Q1

REPORT INFORMATION
  Report Type: Spontaneous
  Country: US (occurrence: US)
  Receive Date: 20210118
  Receipt Date: 20210301
  Transmission Date: 20210419
  Serious: No
  Sender: FDA-Public Use
  Company Number: US-ASTRAZENECA-2021A002437

PATIENT
  Age: 70 Year
  Sex: Female
  Weight: 84.8 kg

DRUGS (4)
  1. BYDUREON [Suspect]
     Active Substance: EXENATIDE
     Indication: TYPE 2 DIABETES MELLITUS
     Route: 058
  2. LISINOPRIL. [Concomitant]
     Active Substance: LISINOPRIL
     Indication: HYPERTENSION
     Route: 065
     Dates: start: 202009
  3. ZOCOR [Concomitant]
     Active Substance: SIMVASTATIN
     Indication: HYPERTENSION
     Route: 065
     Dates: end: 202009
  4. ASPIRIN. [Concomitant]
     Active Substance: ASPIRIN
     Route: 065

REACTIONS (11)
  - Drug eruption [Unknown]
  - Wound [Unknown]
  - Hypoacusis [Unknown]
  - Vulvovaginal burning sensation [Unknown]
  - Product packaging quantity issue [Unknown]
  - Fungal infection [Unknown]
  - Wound complication [Unknown]
  - Dysuria [Unknown]
  - Pruritus genital [Unknown]
  - Eosinophilia [Unknown]
  - Hypertension [Unknown]

NARRATIVE: CASE EVENT DATE: 2019
